FAERS Safety Report 5385529-4 (Version None)
Quarter: 2007Q3

REPORT INFORMATION
  Report Type: 
  Country: None (occurrence: None)
  Receive Date: 20070712
  Receipt Date: 20070709
  Transmission Date: 20080115
  Serious: Yes (Other)
  Sender: FDA-Public Use
  Company Number: A0662480A

PATIENT
  Age: 38 Year
  Sex: Female

DRUGS (7)
  1. LAMICTAL [Suspect]
     Indication: BIPOLAR DISORDER
     Dosage: 100MG PER DAY
     Route: 048
     Dates: start: 20060809
  2. ADDERALL XR 10 [Suspect]
     Indication: OBSESSIVE-COMPULSIVE DISORDER
     Dosage: 40MG PER DAY
     Route: 048
  3. FEMINON [Concomitant]
  4. SUDAFED 12 HOUR [Concomitant]
  5. ADVIL LIQUI-GELS [Concomitant]
  6. EXCEDRIN [Concomitant]
  7. BENADRYL [Concomitant]

REACTIONS (18)
  - BODY TEMPERATURE INCREASED [None]
  - CRYING [None]
  - EAR PAIN [None]
  - GAIT DISTURBANCE [None]
  - HYPERHIDROSIS [None]
  - HYPOMANIA [None]
  - INSOMNIA [None]
  - LOCAL SWELLING [None]
  - LYMPH NODE PAIN [None]
  - LYMPHADENOPATHY [None]
  - OTORRHOEA [None]
  - PRURITUS [None]
  - PYREXIA [None]
  - SINUSITIS [None]
  - SKIN WARM [None]
  - VISUAL DISTURBANCE [None]
  - VOMITING [None]
  - WEIGHT DECREASED [None]
